FAERS Safety Report 6903957-X (Version None)
Quarter: 2010Q3

REPORT INFORMATION
  Report Type: 
  Country: None (occurrence: None)
  Receive Date: 20100804
  Receipt Date: 20090212
  Transmission Date: 20110219
  Serious: Yes (Other)
  Sender: FDA-Public Use
  Company Number: US-PFIZER INC-2009171429

PATIENT
  Sex: Female
  Weight: 90.264 kg

DRUGS (15)
  1. LYRICA [Suspect]
     Indication: FIBROMYALGIA
     Dosage: 75 MG, 1X/DAY
     Route: 048
     Dates: start: 20090201, end: 20090209
  2. LASIX [Concomitant]
     Dosage: UNK
  3. POTASSIUM CHLORIDE [Concomitant]
     Dosage: UNK
  4. DIOVAN [Concomitant]
     Dosage: UNK
  5. ALL OTHER THERAPEUTIC PRODUCTS [Concomitant]
     Dosage: UNK
  6. ACETYLSALICYLIC ACID [Concomitant]
     Dosage: UNK
  7. CRESTOR [Concomitant]
     Dosage: UNK
  8. REQUIP [Concomitant]
     Dosage: UNK
  9. HUMALOG [Concomitant]
     Dosage: UNK
  10. NIACIN [Concomitant]
     Dosage: UNK
  11. NEXIUM [Concomitant]
     Dosage: UNK
  12. SYNTHROID [Concomitant]
     Dosage: UNK
  13. CYMBALTA [Concomitant]
     Dosage: UNK
  14. ROZEREM [Concomitant]
     Dosage: UNK
  15. TOPAMAX [Concomitant]
     Dosage: UNK

REACTIONS (2)
  - OEDEMA PERIPHERAL [None]
  - SWELLING FACE [None]
